FAERS Safety Report 7959399-1 (Version None)
Quarter: 2011Q4

REPORT INFORMATION
  Report Type: 
  Country: None (occurrence: None)
  Receive Date: 20111206
  Receipt Date: 20111117
  Transmission Date: 20120403
  Serious: No
  Sender: FDA-Public Use
  Company Number: US-ROXANE LABORATORIES, INC.-2011-RO-01585RO

PATIENT
  Sex: Female

DRUGS (7)
  1. COUMADIN [Concomitant]
  2. FLUTICASONE PROPIONATE [Suspect]
     Indication: SINUS CONGESTION
  3. IMURAN [Concomitant]
  4. LORATADINE [Concomitant]
  5. BACTRIM [Concomitant]
  6. VITAMIN TAB [Concomitant]
  7. FLUTICASONE PROPIONATE [Suspect]
     Indication: EAR CONGESTION
     Route: 045
     Dates: start: 20110902

REACTIONS (1)
  - DRUG INEFFECTIVE [None]
